FAERS Safety Report 6877045-5 (Version None)
Quarter: 2010Q3

REPORT INFORMATION
  Report Type: 
  Country: None (occurrence: None)
  Receive Date: 20100727
  Receipt Date: 20100727
  Transmission Date: 20110219
  Serious: Yes (Hospitalization)
  Sender: FDA-Public Use
  Company Number: None

PATIENT
  Age: 54 Year
  Sex: Male
  Weight: 88.6 kg

DRUGS (2)
  1. CEFEPIME 1000 MG [Suspect]
     Indication: OSTEOMYELITIS
     Dosage: 1000 MG DAILY ORAL 047
     Route: 048
  2. CIPROFLOXACIN 1500 MG UNK [Suspect]
     Indication: OSTEOMYELITIS
     Dosage: 1500 MG DAILY ORAL 047
     Route: 048

REACTIONS (3)
  - COAGULOPATHY [None]
  - JAUNDICE [None]
  - MENTAL STATUS CHANGES [None]
